FAERS Safety Report 17476352 (Version 1)
Quarter: 2020Q1

REPORT INFORMATION
  Report Type: Report from Study
  Country: BR (occurrence: BR)
  Receive Date: 20200228
  Receipt Date: 20200228
  Transmission Date: 20200409
  Serious: Yes (Other)
  Sender: FDA-Public Use
  Company Number: BR-JNJFOC-20191028342

PATIENT
  Sex: Female
  Weight: 82 kg

DRUGS (1)
  1. USTEKINUMAB [Suspect]
     Active Substance: USTEKINUMAB
     Indication: PSORIASIS
     Route: 058
     Dates: start: 20140506, end: 20180726

REACTIONS (4)
  - Chikungunya virus infection [Unknown]
  - Weight increased [Unknown]
  - Psoriasis [Not Recovered/Not Resolved]
  - Product prescribing error [Unknown]
